FAERS Safety Report 4336118-1 (Version None)
Quarter: 2004Q2

REPORT INFORMATION
  Report Type: 
  Country: None (occurrence: None)
  Receive Date: 20040407
  Receipt Date: 20040325
  Transmission Date: 20050107
  Serious: Yes (Disabling)
  Sender: FDA-Public Use
  Company Number: A01200401447

PATIENT
  Age: 37 Year
  Sex: Female

DRUGS (7)
  1. ELOXATIN [Suspect]
     Indication: COLON CANCER
     Dosage: 130 MG/M2  Q3W  INTRAVENOUS NOS
     Route: 042
  2. XELODA [Suspect]
     Indication: COLON CANCER
     Dosage: 1000 MG BID  ORAL
     Route: 048
     Dates: start: 20031007, end: 20031202
  3. PROGRAF [Concomitant]
  4. OXYCONTIN [Concomitant]
  5. SEVREDOL(MORPHINE SULFATE) [Concomitant]
  6. VIOXX [Concomitant]
  7. OMEPRAZOLE [Concomitant]

REACTIONS (2)
  - PARESIS [None]
  - UPPER MOTOR NEURONE LESION [None]
